FAERS Safety Report 9077551 (Version 1)
Quarter: 2013Q1

REPORT INFORMATION
  Report Type: Spontaneous
  Country: FR (occurrence: FR)
  Receive Date: 20130215
  Receipt Date: 20130215
  Transmission Date: 20140127
  Serious: Yes (Other)
  Sender: FDA-Public Use
  Company Number: PHHY2013FR013035

PATIENT
  Age: 9 Year
  Sex: Female

DRUGS (7)
  1. MYCOPHENOLATE MOFETIL [Suspect]
     Indication: IMMUNOSUPPRESSION
  2. PREDNISONE [Suspect]
     Indication: IMMUNOSUPPRESSION
     Dosage: 50 MG, UNK
  3. PREDNISONE [Suspect]
     Dosage: 5 MG, UNK
  4. TACROLIMUS [Suspect]
     Indication: IMMUNOSUPPRESSION
  5. CICLOSPORIN [Concomitant]
     Indication: IMMUNOSUPPRESSION
  6. BASILIXIMAB [Concomitant]
  7. PREDNISOLONE [Concomitant]
     Dosage: 60 MG/M2, UNK

REACTIONS (13)
  - Diabetes mellitus [Recovering/Resolving]
  - Hyperglycaemia [Recovering/Resolving]
  - Glycosuria [Recovering/Resolving]
  - Type 1 diabetes mellitus [Recovering/Resolving]
  - Pancreatic atrophy [Recovering/Resolving]
  - Hypertrichosis [Recovering/Resolving]
  - Glucose tolerance impaired [Recovering/Resolving]
  - Cytomegalovirus infection [Recovering/Resolving]
  - Pyrexia [Recovering/Resolving]
  - Hepatomegaly [Recovering/Resolving]
  - Type 2 diabetes mellitus [Recovering/Resolving]
  - Hyperinsulinaemia [Recovering/Resolving]
  - Ketoacidosis [Recovering/Resolving]
